FAERS Safety Report 9060695 (Version 2)
Quarter: 2013Q1

REPORT INFORMATION
  Report Type: Report from Study
  Country: RU (occurrence: RU)
  Receive Date: 20130204
  Receipt Date: 20130207
  Transmission Date: 20140127
  Serious: Yes (Hospitalization, Other)
  Sender: FDA-Public Use
  Company Number: RU-ROCHE-1186693

PATIENT
  Age: 60 Year
  Sex: Female
  Weight: 77 kg

DRUGS (5)
  1. AVASTIN [Suspect]
     Indication: COLON CANCER
     Route: 042
     Dates: start: 20120503, end: 20130131
  2. XELODA [Suspect]
     Indication: COLON CANCER
     Route: 042
     Dates: start: 20120503, end: 20121018
  3. XELODA [Suspect]
     Route: 042
     Dates: start: 20121129, end: 20130131
  4. OXALIPLATIN [Concomitant]
     Indication: COLON CANCER
     Route: 042
     Dates: start: 20120503, end: 20121018
  5. IRINOTECAN [Concomitant]
     Indication: COLON CANCER
     Route: 042
     Dates: start: 20121129, end: 20130131

REACTIONS (3)
  - Disease progression [Not Recovered/Not Resolved]
  - Haemorrhage [Recovered/Resolved]
  - Ascites [Not Recovered/Not Resolved]
